FAERS Safety Report 18552023 (Version 1)
Quarter: 2020Q4

REPORT INFORMATION
  Report Type: Other
  Country: IR (occurrence: IR)
  Receive Date: 20201126
  Receipt Date: 20201126
  Transmission Date: 20210114
  Serious: Yes (Hospitalization)
  Sender: FDA-Public Use
  Company Number: IR-ROCHE-2703870

PATIENT
  Age: 52 Year
  Sex: Male

DRUGS (9)
  1. VANCOMYCIN [Concomitant]
     Active Substance: VANCOMYCIN
  2. KALETRA [Concomitant]
     Active Substance: LOPINAVIR\RITONAVIR
  3. METFORMIN [Concomitant]
     Active Substance: METFORMIN HYDROCHLORIDE
  4. ACTEMRA [Suspect]
     Active Substance: TOCILIZUMAB
     Indication: RESPIRATORY DISTRESS
  5. LEVOFLOXACIN. [Concomitant]
     Active Substance: LEVOFLOXACIN
  6. TAMIFLU [Suspect]
     Active Substance: OSELTAMIVIR PHOSPHATE
     Indication: COVID-19
     Route: 065
  7. RIBAVIRIN. [Suspect]
     Active Substance: RIBAVIRIN
     Indication: COVID-19
     Route: 065
  8. ACTEMRA [Suspect]
     Active Substance: TOCILIZUMAB
     Indication: COVID-19
     Route: 065
  9. CHLOROQUINE. [Concomitant]
     Active Substance: CHLOROQUINE

REACTIONS (3)
  - Off label use [Unknown]
  - Pneumonia [Recovered/Resolved]
  - Intentional product use issue [Unknown]
